FAERS Safety Report 10244290 (Version 2)
Quarter: 2014Q2

REPORT INFORMATION
  Report Type: Spontaneous
  Country: CA (occurrence: None)
  Receive Date: 20140616
  Receipt Date: 20140630
  Transmission Date: 20141212
  Serious: Yes (Hospitalization)
  Sender: FDA-Public Use
  Company Number: CA-015980

PATIENT
  Sex: Male
  Weight: 80 kg

DRUGS (1)
  1. FIRMAGON  /01764801/ (FIRMAGON) (NOT SPECIFIED) [Suspect]
     Indication: PRODUCT USED FOR UNKNOWN INDICATION

REACTIONS (2)
  - Embolism [None]
  - Nephrolithiasis [None]
